FAERS Safety Report 9847788 (Version 1)
Quarter: 2014Q1

REPORT INFORMATION
  Report Type: Spontaneous
  Country: US (occurrence: US)
  Receive Date: 20140128
  Receipt Date: 20140128
  Transmission Date: 20141002
  Serious: No
  Sender: FDA-Public Use
  Company Number: US-BIOGENIDEC-2014BI006549

PATIENT
  Age: 53 Year
  Sex: Female

DRUGS (12)
  1. TECFIDERA [Suspect]
     Indication: MULTIPLE SCLEROSIS
     Route: 048
     Dates: start: 201312
  2. TECFIDERA [Suspect]
     Indication: MULTIPLE SCLEROSIS
     Route: 048
     Dates: start: 201312
  3. AMBIEN [Concomitant]
  4. ALEVE [Concomitant]
  5. LIDOCAINE [Concomitant]
  6. LANTUS SOLOSTAR [Concomitant]
  7. NOVOLOG FLEXPEN [Concomitant]
  8. CYMBALTA [Concomitant]
  9. LOSARTAN POTASSIUM [Concomitant]
  10. METFORMIN HCL [Concomitant]
  11. BACLOFEN [Concomitant]
  12. PRILOSEC DR [Concomitant]

REACTIONS (5)
  - Arthralgia [Unknown]
  - Joint swelling [Unknown]
  - Fatigue [Unknown]
  - Muscular weakness [Unknown]
  - Fall [Recovered/Resolved]
